FAERS Safety Report 4497642-4 (Version None)
Quarter: 2004Q4

REPORT INFORMATION
  Report Type: 
  Country: None (occurrence: None)
  Receive Date: 20041103
  Receipt Date: 20041018
  Transmission Date: 20050328
  Serious: Yes (Hospitalization)
  Sender: FDA-Public Use
  Company Number: US-JNJFOC-20040804406

PATIENT
  Sex: Female

DRUGS (30)
  1. DURAGESIC [Suspect]
     Route: 062
     Dates: start: 20010924
  2. DURAGESIC [Suspect]
     Route: 062
     Dates: start: 20010924
  3. DURAGESIC [Suspect]
     Route: 062
     Dates: start: 20010924
  4. DURAGESIC [Suspect]
     Route: 062
     Dates: start: 20010924
  5. DURAGESIC [Suspect]
     Route: 062
     Dates: start: 20010924
  6. OXYCODONE HCL [Concomitant]
     Dosage: ONE TO TWO TABLETS EVERY SIX TO EIGHT HOURS
     Route: 049
     Dates: start: 20011031
  7. PREMARIN [Concomitant]
     Route: 049
     Dates: start: 19950801
  8. METOCLOPRAMIDE [Concomitant]
     Route: 049
  9. PROTONIX [Concomitant]
     Route: 049
  10. FLAGYL [Concomitant]
     Route: 042
     Dates: start: 20040610, end: 20040802
  11. CESEPIME [Concomitant]
     Dosage: ONE TO TWO DOSES PER DAY
     Route: 042
     Dates: start: 20040610, end: 20040802
  12. ATIVAN [Concomitant]
     Dosage: AS NEEDED
     Route: 042
  13. TYLENOL [Concomitant]
     Dates: start: 20040101
  14. BLOOD TRANSFUSION [Concomitant]
     Route: 042
     Dates: start: 20040101
  15. LEVO-DROMORAN [Concomitant]
     Route: 049
     Dates: start: 20040505, end: 20040622
  16. CARAFATE [Concomitant]
     Dates: start: 20031219
  17. HYCODAN [Concomitant]
     Dosage: AS NEEDED
     Route: 049
     Dates: start: 20030116
  18. LEVAQUIN [Concomitant]
     Route: 042
     Dates: start: 20031023
  19. LISINOPRIL [Concomitant]
     Route: 049
     Dates: start: 19960307
  20. MIACALCIN [Concomitant]
     Route: 045
     Dates: start: 20040311
  21. DILAUDID [Concomitant]
     Indication: PAIN
     Dosage: EVERY THREE TO SIX HOURS AS NEEDED
     Route: 049
     Dates: start: 20020208, end: 20040622
  22. ZOFRAN [Concomitant]
     Indication: NAUSEA
     Route: 049
     Dates: start: 20030625
  23. ACTIQ [Concomitant]
     Dosage: 200 UG TO 800 UG EVERY THREE TO FOUR HOURS AS  NEEDED
     Route: 049
     Dates: start: 20030617, end: 20030814
  24. FLAGYL [Concomitant]
     Route: 049
     Dates: start: 20040610
  25. ZOFRAN [Concomitant]
     Dosage: 2 MG/ML EVERY 6 TO 8 HOURS AS NEEDED
     Route: 042
     Dates: start: 20031219
  26. PRILOSEC [Concomitant]
     Dosage: ONE TO TWO TIMES PER DAY
     Route: 049
     Dates: start: 20021017
  27. ZANTAC [Concomitant]
     Route: 049
     Dates: start: 20021126
  28. HYCODAN [Concomitant]
     Dosage: AS NEEDED
     Route: 049
     Dates: start: 20030116
  29. CLINDAMYCIN PHOSPHATE [Concomitant]
     Route: 042
     Dates: start: 20040825
  30. NEURONTIN [Concomitant]
     Route: 049
     Dates: start: 20040127

REACTIONS (16)
  - ANAEMIA [None]
  - ARTHRALGIA [None]
  - DIZZINESS [None]
  - DRUG EFFECT DECREASED [None]
  - EXTRADURAL ABSCESS [None]
  - GAIT DISTURBANCE [None]
  - GASTROOESOPHAGEAL REFLUX DISEASE [None]
  - HERPES ZOSTER [None]
  - HYPERHIDROSIS [None]
  - HYPOAESTHESIA [None]
  - NAUSEA [None]
  - OSTEOMYELITIS [None]
  - PHARMACEUTICAL PRODUCT COMPLAINT [None]
  - PNEUMONIA [None]
  - PYREXIA [None]
  - TRANSFUSION REACTION [None]
